FAERS Safety Report 5255576-1 (Version None)
Quarter: 2007Q1

REPORT INFORMATION
  Report Type: 
  Country: None (occurrence: None)
  Receive Date: 20070228
  Receipt Date: 20070215
  Transmission Date: 20070707
  Serious: Yes (Life-Threatening, Hospitalization, Disabling)
  Sender: FDA-Public Use
  Company Number: GXKR2007DE01855

PATIENT
  Age: 68 Year
  Sex: Male
  Weight: 66 kg

DRUGS (1)
  1. LOVABETA (NGX) (LOVASTATIN) TABLET [Suspect]
     Indication: HYPERLIPIDAEMIA
     Dosage: 40 MG, QD, ORAL
     Route: 048
     Dates: start: 20031101

REACTIONS (4)
  - CONTINUOUS HAEMODIAFILTRATION [None]
  - QUADRIPLEGIA [None]
  - RENAL FAILURE [None]
  - RHABDOMYOLYSIS [None]
